FAERS Safety Report 5948095-8 (Version None)
Quarter: 2008Q4

REPORT INFORMATION
  Report Type: 
  Country: None (occurrence: None)
  Receive Date: 20081107
  Receipt Date: 20081031
  Transmission Date: 20090506
  Serious: Yes (Hospitalization)
  Sender: FDA-Public Use
  Company Number: 6046837

PATIENT
  Age: 95 Year
  Sex: Female

DRUGS (11)
  1. BISOPROLOL FUMARATE [Suspect]
     Indication: DRUG USE FOR UNKNOWN INDICATION
     Dosage: 2.5 MG (2.5 MG, 1 D) ORAL
     Route: 048
  2. DIGOXIN [Suspect]
     Indication: DRUG USE FOR UNKNOWN INDICATION
     Dosage: 0.125 MG (0.125 MG, 1 D) ORAL
     Route: 048
     Dates: end: 20080929
  3. ASPIRIN [Concomitant]
  4. TANGANIL (ETHANOLAMINE ACETYLLEUCINATE) [Concomitant]
  5. UMULINE NPH (ISOPHANE INSULIN, INSULIN HUMAN) [Concomitant]
  6. VASTAREL (TRIMETAZIDINE HYDROCHLORIDE) [Concomitant]
  7. DIOVENOR (DIOSMIN) [Concomitant]
  8. LIPANOR (CIPROFIBRATE) [Concomitant]
  9. CALTRATE (CALCIUM CARBONATE) [Concomitant]
  10. HEPT-A-MYL (HEPTAMINOL HYDROCHLORIDE) [Concomitant]
  11. BETAMETHASONE VALERATE [Concomitant]

REACTIONS (8)
  - BALANCE DISORDER [None]
  - BLOOD POTASSIUM INCREASED [None]
  - BUNDLE BRANCH BLOCK LEFT [None]
  - BUNDLE BRANCH BLOCK RIGHT [None]
  - CONFUSIONAL STATE [None]
  - CREATININE RENAL CLEARANCE DECREASED [None]
  - DRUG INTERACTION [None]
  - ELECTROCARDIOGRAM PR PROLONGATION [None]
